FAERS Safety Report 4404615-6 (Version None)
Quarter: 2004Q3

REPORT INFORMATION
  Report Type: 
  Country: None (occurrence: None)
  Receive Date: 20040721
  Receipt Date: 20040721
  Transmission Date: 20050211
  Serious: Yes (Other)
  Sender: FDA-Public Use
  Company Number: None

PATIENT
  Age: 43 Year
  Sex: Female
  Weight: 135.1719 kg

DRUGS (4)
  1. AVANDIA [Suspect]
     Indication: DIABETES MELLITUS NON-INSULIN-DEPENDENT
     Dosage: 4 MG 1/2 QD PO
     Route: 048
  2. GLUCOPHAGE [Concomitant]
  3. PRAVACHOL [Concomitant]
  4. ASPIRIN [Concomitant]

REACTIONS (3)
  - DYSPNOEA [None]
  - PRODUCTIVE COUGH [None]
  - PULMONARY CONGESTION [None]
